FAERS Safety Report 9170157 (Version 1)
Quarter: 2013Q1

REPORT INFORMATION
  Report Type: Spontaneous
  Country: JP (occurrence: JP)
  Receive Date: 20130319
  Receipt Date: 20130319
  Transmission Date: 20140127
  Serious: Yes (Hospitalization, Other)
  Sender: FDA-Public Use
  Company Number: PHHY2013JP011213

PATIENT
  Sex: Male

DRUGS (3)
  1. EXJADE [Suspect]
     Indication: PLASMA CELL MYELOMA
     Dosage: 500 MG, QD
     Dates: start: 20130121, end: 20130128
  2. VOLTAREN [Suspect]
     Indication: CANCER PAIN
     Dosage: 25 MG, (TWO TABLETS) BID
     Route: 048
  3. REVLIMID [Suspect]
     Indication: PLASMA CELL MYELOMA
     Dosage: UNK UKN, UNK

REACTIONS (5)
  - Renal tubular necrosis [Recovered/Resolved]
  - Renal impairment [Recovered/Resolved]
  - Haemolysis [Unknown]
  - Urine output decreased [Unknown]
  - Pain [Unknown]
